FAERS Safety Report 6083246-9 (Version None)
Quarter: 2009Q1

REPORT INFORMATION
  Report Type: 
  Country: None (occurrence: None)
  Receive Date: 20090219
  Receipt Date: 20090205
  Transmission Date: 20090719
  Serious: Yes (Hospitalization)
  Sender: FDA-Public Use
  Company Number: GB-ASTRAZENECA-2009GB00349

PATIENT
  Age: 28417 Day
  Sex: Female
  Weight: 39.4 kg

DRUGS (5)
  1. FASLODEX [Suspect]
     Indication: BREAST CANCER METASTATIC
     Dosage: DAY 1
     Route: 030
     Dates: start: 20080807
  2. FASLODEX [Suspect]
     Dosage: 250 MG ON DAYS 15 AND 29.
     Route: 030
  3. FASLODEX [Suspect]
     Route: 030
  4. ARIMIDEX [Suspect]
     Indication: BREAST CANCER METASTATIC
     Route: 048
     Dates: start: 20080807
  5. ASPIRIN [Suspect]

REACTIONS (1)
  - GASTRIC ULCER [None]
